FAERS Safety Report 23649793 (Version 2)
Quarter: 2024Q4

REPORT INFORMATION
  Report Type: Spontaneous
  Country: IT (occurrence: IT)
  Receive Date: 20240319
  Receipt Date: 20241213
  Transmission Date: 20250114
  Serious: Yes (Other)
  Sender: MERCK
  Company Number: IT-009507513-2403ITA004177

PATIENT
  Age: 55 Year
  Sex: Female

DRUGS (2)
  1. PEMBROLIZUMAB [Suspect]
     Active Substance: PEMBROLIZUMAB
     Indication: Malignant melanoma
     Dosage: 200 MG (FLAT DOSE) 3-WEEKLY
  2. PEMBROLIZUMAB [Suspect]
     Active Substance: PEMBROLIZUMAB
     Indication: Lymphatic mapping

REACTIONS (5)
  - Immune-mediated hyperthyroidism [Unknown]
  - Immune-mediated thyroiditis [Unknown]
  - Primary adrenal insufficiency [Unknown]
  - Adrenalitis [Unknown]
  - Immune-mediated hypothyroidism [Unknown]
